FAERS Safety Report 11913285 (Version 2)
Quarter: 2016Q1

REPORT INFORMATION
  Report Type: Spontaneous
  Country: AM (occurrence: AM)
  Receive Date: 20160113
  Receipt Date: 20160120
  Transmission Date: 20160526
  Serious: No
  Sender: FDA-Public Use
  Company Number: AM-AMGEN-ARMSP2015141330

PATIENT

DRUGS (5)
  1. IVABRADINE [Suspect]
     Active Substance: IVABRADINE
     Indication: PROPHYLAXIS
     Dosage: UNK
     Route: 048
  2. AMIODARONE [Concomitant]
     Active Substance: AMIODARONE
     Dosage: 600 MG, DAILY FOR ONE WEEK
  3. AMIODARONE [Concomitant]
     Active Substance: AMIODARONE
     Dosage: 200 MG, DAILY UNTIL THE END OF THE STUDY
  4. AMIODARONE [Concomitant]
     Active Substance: AMIODARONE
     Dosage: 400 MG, DAILY FOR TWO MONTHS
  5. IVABRADINE [Suspect]
     Active Substance: IVABRADINE
     Dosage: 7.5 MG, BID
     Route: 048

REACTIONS (3)
  - Hypotension [Unknown]
  - Asthenia [Unknown]
  - Conduction disorder [Unknown]
